FAERS Safety Report 8091717-9 (Version None)
Quarter: 2012Q1

REPORT INFORMATION
  Report Type: 
  Country: None (occurrence: None)
  Receive Date: 20120131
  Receipt Date: 20120119
  Transmission Date: 20120608
  Serious: Yes (Hospitalization)
  Sender: FDA-Public Use
  Company Number: US-UCBSA-050010

PATIENT

DRUGS (2)
  1. DEPAKOTE [Concomitant]
  2. VIMPAT [Suspect]

REACTIONS (1)
  - EPILEPSY [None]
